FAERS Safety Report 13696597 (Version 1)
Quarter: 2017Q2

REPORT INFORMATION
  Report Type: Spontaneous
  Country: FR (occurrence: FR)
  Receive Date: 20170628
  Receipt Date: 20170628
  Transmission Date: 20170830
  Serious: Yes (Hospitalization)
  Sender: FDA-Public Use
  Company Number: FR-ASTRAZENECA-2017SE65407

PATIENT
  Age: 991 Month
  Sex: Female

DRUGS (14)
  1. MIANSERIN [Suspect]
     Active Substance: MIANSERIN
     Indication: DEPRESSIVE SYMPTOM
     Dosage: 10 MG IN  THE EVENING
     Route: 048
     Dates: start: 20170524, end: 20170530
  2. CONTRAMAL [Suspect]
     Active Substance: TRAMADOL HYDROCHLORIDE
     Indication: PAIN
     Route: 048
     Dates: start: 20170524, end: 20170530
  3. MOVICOL [Concomitant]
     Active Substance: POLYETHYLENE GLYCOL 3350\POTASSIUM CHLORIDE\SODIUM BICARBONATE\SODIUM CHLORIDE
  4. INEXIUM [Suspect]
     Active Substance: ESOMEPRAZOLE
     Route: 048
     Dates: end: 20170530
  5. ESCITALOPRAM [Suspect]
     Active Substance: ESCITALOPRAM OXALATE
     Indication: DEPRESSION
     Route: 048
     Dates: end: 20170527
  6. DOLIPRANE [Suspect]
     Active Substance: ACETAMINOPHEN
     Indication: PAIN
     Route: 048
     Dates: end: 20170530
  7. MEMANTINE. [Suspect]
     Active Substance: MEMANTINE
     Indication: DEMENTIA ALZHEIMER^S TYPE
     Route: 048
     Dates: end: 20170530
  8. JANUVIA [Suspect]
     Active Substance: SITAGLIPTIN PHOSPHATE
     Indication: DIABETES MELLITUS
     Dosage: 100 MG AT  LUNCH TIME
     Route: 048
     Dates: end: 20170524
  9. NOVORAPID [Suspect]
     Active Substance: INSULIN ASPART
     Indication: DIABETES MELLITUS
     Dosage: AS PER GLYCEMIA
     Route: 058
  10. LOXAPAC [Suspect]
     Active Substance: LOXAPINE SUCCINATE
     Indication: ACUTE PSYCHOSIS
     Dosage: 5.0MG AS REQUIRED
     Route: 048
     Dates: start: 20170524, end: 20170530
  11. GALVUS [Suspect]
     Active Substance: VILDAGLIPTIN
     Indication: DIABETES MELLITUS
     Dosage: 50 MG IN THE EVENING
     Route: 048
     Dates: start: 20170524, end: 20170530
  12. METFORMIN [Suspect]
     Active Substance: METFORMIN HYDROCHLORIDE
     Indication: DIABETES MELLITUS
     Dosage: ONE DOSAGE FORM IN THE MORNING AND TWO DOSAGE FORMS AT NIGHT (NON AZ PRODUCT)
     Route: 048
     Dates: end: 20170530
  13. LYSANXIA [Suspect]
     Active Substance: PRAZEPAM
     Indication: ANXIETY
     Route: 048
     Dates: start: 20170524, end: 20170530
  14. LANTUS [Suspect]
     Active Substance: INSULIN GLARGINE
     Indication: DIABETES MELLITUS
     Route: 058

REACTIONS (3)
  - Encephalopathy [Not Recovered/Not Resolved]
  - Acute kidney injury [Recovered/Resolved]
  - Hepatitis [Recovered/Resolved]

NARRATIVE: CASE EVENT DATE: 201705
